FAERS Safety Report 4557603-3 (Version None)
Quarter: 2005Q1

REPORT INFORMATION
  Report Type: 
  Country: None (occurrence: None)
  Receive Date: 20050120
  Receipt Date: 20041122
  Transmission Date: 20050727
  Serious: Yes (Life-Threatening, Hospitalization)
  Sender: FDA-Public Use
  Company Number: US-MERCK-0411USA03531

PATIENT
  Age: 59 Year
  Sex: Female

DRUGS (3)
  1. VIOXX [Suspect]
     Indication: SURGERY
     Route: 048
     Dates: start: 20010101, end: 20031222
  2. VIOXX [Suspect]
     Indication: BACK PAIN
     Route: 048
     Dates: start: 20010101, end: 20031222
  3. PREMPRO [Concomitant]
     Route: 065

REACTIONS (2)
  - CORONARY ARTERY OCCLUSION [None]
  - MYOCARDIAL INFARCTION [None]
